FAERS Safety Report 6396029-7 (Version None)
Quarter: 2009Q4

REPORT INFORMATION
  Report Type: 
  Country: None (occurrence: None)
  Receive Date: 20091009
  Receipt Date: 20090928
  Transmission Date: 20100525
  Serious: Yes (Hospitalization, Other)
  Sender: FDA-Public Use
  Company Number: AT-ELI_LILLY_AND_COMPANY-AT200909006873

PATIENT
  Age: 25 Year
  Sex: Female

DRUGS (4)
  1. ZYPREXA [Suspect]
     Dosage: 15 MG, DAILY (1/D)
     Dates: start: 20090707, end: 20090707
  2. ZYPREXA [Suspect]
     Dosage: 20 MG, DAILY (1/D)
     Dates: start: 20090708, end: 20090715
  3. HALDOL [Concomitant]
     Dosage: 5 MG, DAILY (1/D)
     Dates: start: 20090704, end: 20090706
  4. GLADEM [Concomitant]
     Dosage: 50 MG, DAILY (1/D)
     Dates: start: 20090707, end: 20090715

REACTIONS (1)
  - ELECTROCARDIOGRAM QT PROLONGED [None]
